FAERS Safety Report 9178430 (Version 1)
Quarter: 2012Q4

REPORT INFORMATION
  Report Type: Report from Study
  Country: JP (occurrence: JP)
  Receive Date: 20121029
  Receipt Date: 20121029
  Transmission Date: 20130627
  Serious: Yes (Hospitalization)
  Sender: FDA-Public Use
  Company Number: JP-VERTEX PHARMACEUTICAL INC.-2012-023579

PATIENT
  Age: 62 Year
  Sex: Female

DRUGS (13)
  1. VX-950 [Suspect]
     Indication: HEPATITIS C
     Dosage: 1500 mg, qd
     Route: 048
     Dates: start: 20120709
  2. RIBAVIRIN [Suspect]
     Indication: HEPATITIS C
     Dosage: 400 mg, qd
     Route: 048
     Dates: start: 20120709, end: 201207
  3. RIBAVIRIN [Suspect]
     Dosage: 200 mg, qd
     Route: 048
     Dates: start: 20120731, end: 20120826
  4. RIBAVIRIN [Suspect]
     Dosage: 200 mg, qod
     Route: 048
     Dates: start: 20120827, end: 20120920
  5. RIBAVIRIN [Suspect]
     Dosage: 200 mg, qd
     Route: 048
     Dates: start: 20120921, end: 20120923
  6. RIBAVIRIN [Suspect]
     Dosage: 200 mg, qod
     Route: 048
     Dates: start: 20120924
  7. PEGINTERFERON ALFA-2B [Suspect]
     Indication: HEPATITIS C
     Dosage: 1.5 �g/kg, weekly
     Route: 058
     Dates: start: 20120709, end: 2012
  8. PEGINTERFERON ALFA-2B [Suspect]
     Dosage: 30 �g, weekly
     Route: 058
     Dates: start: 20120827
  9. MAGLAX [Concomitant]
     Route: 048
  10. PRIMPERAN [Concomitant]
     Route: 048
  11. PARIET [Concomitant]
     Route: 048
  12. PREDONINE                          /00016204/ [Concomitant]
     Dosage: 30 mg, qd
     Route: 048
     Dates: start: 20121001
  13. ZYLORIC [Concomitant]
     Dosage: 200 mg, qd
     Route: 048

REACTIONS (1)
  - Erythema [Unknown]
